FAERS Safety Report 7866545-7 (Version None)
Quarter: 2011Q4

REPORT INFORMATION
  Report Type: 
  Country: None (occurrence: None)
  Receive Date: 20111028
  Receipt Date: 20110705
  Transmission Date: 20120403
  Serious: No
  Sender: FDA-Public Use
  Company Number: US-GLAXOSMITHKLINE-A0934941A

PATIENT
  Age: 88 Year
  Sex: Female

DRUGS (11)
  1. CRANBERRY TABLETS [Concomitant]
  2. CITRACAL [Concomitant]
  3. CINNAMON [Concomitant]
     Route: 048
  4. CALCIUM CARBONATE [Concomitant]
  5. ADVAIR DISKUS 100/50 [Suspect]
     Indication: ASTHMA
     Dosage: 2PUFF TWICE PER DAY
     Route: 055
     Dates: start: 20100101, end: 20110401
  6. HYDROCHLOROTHIAZIDE [Concomitant]
  7. ONE A DAY VITAMIN [Concomitant]
  8. KLOR-CON [Concomitant]
  9. LOVAZA [Concomitant]
  10. OMEPRAZOLE [Concomitant]
  11. GLIMEPIRIDE [Concomitant]

REACTIONS (2)
  - CANDIDIASIS [None]
  - OVERDOSE [None]
